FAERS Safety Report 5052804-2 (Version None)
Quarter: 2006Q3

REPORT INFORMATION
  Report Type: 
  Country: None (occurrence: None)
  Receive Date: 20060717
  Receipt Date: 20060131
  Transmission Date: 20061208
  Serious: Yes (Life-Threatening, Hospitalization)
  Sender: FDA-Public Use
  Company Number: US-BRISTOL-MYERS SQUIBB COMPANY-13266747

PATIENT
  Age: 40 Year
  Sex: Female

DRUGS (19)
  1. CISPLATIN [Suspect]
     Indication: GASTRIC CANCER
     Route: 042
     Dates: start: 20051118, end: 20051118
  2. TS-1 [Suspect]
     Indication: GASTRIC CANCER
     Route: 048
     Dates: start: 20050121
  3. AMBIEN [Concomitant]
     Indication: INSOMNIA
     Route: 048
  4. BENICAR [Concomitant]
     Indication: HYPERTENSION
     Route: 048
  5. ACIPHEX [Concomitant]
     Indication: GASTROOESOPHAGEAL REFLUX DISEASE
     Route: 048
  6. HYDROMORPHONE HCL [Concomitant]
     Indication: NAUSEA
     Route: 048
     Dates: start: 20041201
  7. XANAX [Concomitant]
     Indication: ANXIETY
     Route: 048
  8. ZOFRAN [Concomitant]
     Indication: NAUSEA
     Route: 048
     Dates: start: 20050121
  9. COMPAZINE [Concomitant]
     Indication: NAUSEA
     Route: 048
     Dates: start: 20050121
  10. SENOKOT [Concomitant]
     Indication: CONSTIPATION
     Route: 048
     Dates: start: 20050122
  11. ADVIL [Concomitant]
     Indication: PAIN
     Route: 048
     Dates: start: 20050127
  12. GAS-X [Concomitant]
     Indication: FLATULENCE
     Route: 048
     Dates: start: 20050411
  13. IMODIUM [Concomitant]
     Indication: DIARRHOEA
     Route: 048
     Dates: start: 20050411
  14. EXCEDRIN (MIGRAINE) [Concomitant]
     Indication: PAIN
     Route: 048
     Dates: start: 20050328
  15. NEXIUM [Concomitant]
     Indication: DYSPEPSIA
     Route: 048
     Dates: start: 20050402
  16. EMEND [Concomitant]
     Indication: PROPHYLAXIS OF NAUSEA AND VOMITING
     Route: 048
     Dates: start: 20050324
  17. TYLENOL (CAPLET) [Concomitant]
     Indication: PAIN
     Route: 048
     Dates: start: 20050910
  18. DECADRON [Concomitant]
     Indication: PREMEDICATION
     Route: 042
     Dates: start: 20050318
  19. ZOFRAN [Concomitant]
     Indication: PREMEDICATION
     Route: 042
     Dates: start: 20050121

REACTIONS (1)
  - HYPOTENSION [None]
